FAERS Safety Report 6713126-4 (Version None)
Quarter: 2010Q2

REPORT INFORMATION
  Report Type: 
  Country: None (occurrence: None)
  Receive Date: 20100506
  Receipt Date: 20090512
  Transmission Date: 20101027
  Serious: No
  Sender: FDA-Public Use
  Company Number: A0783757A

PATIENT
  Sex: Male

DRUGS (10)
  1. AMOXICILLIN [Suspect]
     Indication: TOOTH INFECTION
     Dosage: 250MG FOUR TIMES PER DAY
     Route: 048
     Dates: start: 20060101
  2. PRILOSEC [Concomitant]
  3. ZOCOR [Concomitant]
  4. CARDURA [Concomitant]
  5. TOPROL-XL [Concomitant]
  6. SAW PALMETTO [Concomitant]
  7. VITAMIN B-12 [Concomitant]
  8. MULTI-VITAMIN [Concomitant]
  9. L-LYSINE [Concomitant]
  10. VITAMIN C [Concomitant]

REACTIONS (1)
  - DRUG INEFFECTIVE [None]
